FAERS Safety Report 13322603 (Version 2)
Quarter: 2017Q2

REPORT INFORMATION
  Report Type: Spontaneous
  Country: US (occurrence: US)
  Receive Date: 20170310
  Receipt Date: 20170607
  Transmission Date: 20170830
  Serious: Yes (Other)
  Sender: FDA-Public Use
  Company Number: US-MYLANLABS-2017M1015043

PATIENT

DRUGS (1)
  1. MELPHALAN. [Suspect]
     Active Substance: MELPHALAN
     Indication: CONGENITAL RETINOBLASTOMA
     Dosage: 25MICROG/0.1ML
     Route: 047

REACTIONS (3)
  - Retinopathy haemorrhagic [Unknown]
  - Retinal oedema [Unknown]
  - Chorioretinal atrophy [Unknown]
